FAERS Safety Report 11590385 (Version 2)
Quarter: 2015Q4

REPORT INFORMATION
  Report Type: Spontaneous
  Country: US (occurrence: US)
  Receive Date: 20151002
  Receipt Date: 20151012
  Transmission Date: 20160304
  Serious: Yes (Death)
  Sender: FDA-Public Use
  Company Number: US-INCYTE CORPORATION-2015IN004959

PATIENT
  Age: 72 Year
  Sex: Male

DRUGS (1)
  1. JAKAFI [Suspect]
     Active Substance: RUXOLITINIB
     Indication: MYELOFIBROSIS
     Dosage: 5 MG (2 TABS), BID
     Route: 048
     Dates: start: 20150921, end: 20150927

REACTIONS (2)
  - Fall [Fatal]
  - Aneurysm [Fatal]

NARRATIVE: CASE EVENT DATE: 20150927
